FAERS Safety Report 8853888 (Version 1)
Quarter: 2012Q4

REPORT INFORMATION
  Report Type: 
  Country: PA (occurrence: PA)
  Receive Date: 20121022
  Receipt Date: 20121022
  Transmission Date: 20130627
  Serious: Yes (Other)
  Sender: FDA-Public Use
  Company Number: PA-GENZYME-THYM-1003448

PATIENT
  Sex: Female

DRUGS (1)
  1. THYMOGLOBULINE [Suspect]
     Indication: RENAL TRANSPLANT
     Dosage: UNK
     Route: 065

REACTIONS (3)
  - Focal segmental glomerulosclerosis [Unknown]
  - Kidney transplant rejection [Unknown]
  - BK virus infection [Unknown]
